FAERS Safety Report 8565297-5 (Version None)
Quarter: 2012Q3

REPORT INFORMATION
  Report Type: 
  Country: None (occurrence: None)
  Receive Date: 20120803
  Receipt Date: 20120724
  Transmission Date: 20120928
  Serious: Yes (Life-Threatening)
  Sender: FDA-Public Use
  Company Number: JP-ROCHE-1082461

PATIENT
  Sex: Male
  Weight: 75 kg

DRUGS (11)
  1. HOKUNALIN [Concomitant]
     Indication: TRACHEAL DILATATION
     Dosage: HOKUNALIN:TAPE
     Route: 062
     Dates: start: 20111014
  2. DECADRON PHOSPHATE [Concomitant]
     Indication: PROPHYLAXIS OF NAUSEA AND VOMITING
     Route: 041
     Dates: start: 20120124, end: 20120214
  3. ALOXI [Concomitant]
     Indication: PROPHYLAXIS OF NAUSEA AND VOMITING
     Route: 041
     Dates: start: 20120124, end: 20120214
  4. MUCOSTA [Concomitant]
     Indication: PROPHYLAXIS
     Route: 048
     Dates: start: 20111029
  5. ALIMTA [Suspect]
     Route: 041
     Dates: start: 20120214, end: 20120214
  6. OXYCONTIN [Concomitant]
     Indication: PAIN
     Route: 048
     Dates: start: 20111217
  7. AVASTIN [Suspect]
     Indication: LUNG ADENOCARCINOMA RECURRENT
     Dosage: DOSAGE IS UNCERTAIN.
     Route: 041
     Dates: start: 20120124, end: 20120214
  8. MUCOSOLVAN [Concomitant]
     Indication: PRODUCTIVE COUGH
     Route: 048
     Dates: start: 20120107
  9. ALIMTA [Suspect]
     Indication: LUNG ADENOCARCINOMA RECURRENT
     Dosage: DOSAGE IS UNCERTAIN.
     Route: 041
     Dates: start: 20120124, end: 20120124
  10. LOXONIN [Concomitant]
     Indication: PAIN
     Route: 048
     Dates: start: 20111029
  11. URSO 250 [Concomitant]
     Indication: HEPATITIS C
     Route: 048

REACTIONS (1)
  - IDIOPATHIC PULMONARY FIBROSIS [None]
